FAERS Safety Report 4558755-1 (Version None)
Quarter: 2005Q1

REPORT INFORMATION
  Report Type: 
  Country: None (occurrence: None)
  Receive Date: 20050121
  Receipt Date: 20050111
  Transmission Date: 20050727
  Serious: Yes (Death)
  Sender: FDA-Public Use
  Company Number: US-JNJFOC-20040904032

PATIENT
  Sex: Male
  Weight: 2.38 kg

DRUGS (2)
  1. TOPAMAX [Suspect]
     Route: 064
  2. ZOLOFT [Concomitant]
     Route: 064

REACTIONS (3)
  - DRUG EXPOSURE DURING PREGNANCY [None]
  - STILLBIRTH [None]
  - UMBILICAL CORD AROUND NECK [None]
